FAERS Safety Report 6932536-3 (Version None)
Quarter: 2010Q3

REPORT INFORMATION
  Report Type: 
  Country: None (occurrence: None)
  Receive Date: 20100817
  Receipt Date: 20100803
  Transmission Date: 20110219
  Serious: Yes (Death)
  Sender: FDA-Public Use
  Company Number: UTC-001166

PATIENT
  Age: 75 Year
  Sex: Male

DRUGS (8)
  1. TYVASO [Suspect]
     Indication: PULMONARY ARTERIAL HYPERTENSION
     Dosage: 216 MCG (54 MCG, 4 IN 1 D), INHALATION
     Route: 055
     Dates: start: 20090928
  2. LASIX [Concomitant]
  3. LISINOPRIL [Concomitant]
  4. SIMVASTATIN [Concomitant]
  5. ADVAIR DISKUS 100/50 [Concomitant]
  6. SPIRIVA [Concomitant]
  7. ASPIRIN [Concomitant]
  8. OXYGEN (OXYGEN) [Concomitant]

REACTIONS (10)
  - DILATATION VENTRICULAR [None]
  - DISCOMFORT [None]
  - DISEASE PROGRESSION [None]
  - NO THERAPEUTIC RESPONSE [None]
  - OEDEMA PERIPHERAL [None]
  - PAIN [None]
  - PULMONARY ARTERIAL HYPERTENSION [None]
  - RIGHT ATRIAL DILATATION [None]
  - RIGHT VENTRICULAR SYSTOLIC PRESSURE DECREASED [None]
  - TRICUSPID VALVE INCOMPETENCE [None]
